FAERS Safety Report 13566671 (Version 1)
Quarter: 2017Q2

REPORT INFORMATION
  Report Type: Spontaneous
  Country: ES (occurrence: ES)
  Receive Date: 20170522
  Receipt Date: 20170522
  Transmission Date: 20170830
  Serious: Yes (Other)
  Sender: FDA-Public Use
  Company Number: ES-SUN PHARMACEUTICAL INDUSTRIES LTD-2017RR-140899

PATIENT
  Age: 38 Year
  Sex: Male

DRUGS (11)
  1. CLONAZEPAM. [Suspect]
     Active Substance: CLONAZEPAM
     Indication: ABNORMAL BEHAVIOUR
     Route: 065
  2. RISPERIDONE. [Suspect]
     Active Substance: RISPERIDONE
     Indication: ABNORMAL BEHAVIOUR
     Route: 065
  3. TRIHEXYPHENIDYL [Suspect]
     Active Substance: TRIHEXYPHENIDYL
     Indication: DYSKINESIA
  4. TETRABENAZINE. [Suspect]
     Active Substance: TETRABENAZINE
     Indication: DYSKINESIA
     Route: 065
  5. RISPERIDONE. [Suspect]
     Active Substance: RISPERIDONE
     Indication: DYSKINESIA
  6. PHENYTOIN. [Concomitant]
     Active Substance: PHENYTOIN
     Indication: PLASMA CELL DISORDER
     Dosage: 150 MG, TID
     Route: 065
  7. CLONAZEPAM. [Suspect]
     Active Substance: CLONAZEPAM
     Indication: DYSKINESIA
  8. TRIHEXYPHENIDYL [Suspect]
     Active Substance: TRIHEXYPHENIDYL
     Indication: ABNORMAL BEHAVIOUR
     Route: 065
  9. TETRABENAZINE. [Suspect]
     Active Substance: TETRABENAZINE
     Indication: ABNORMAL BEHAVIOUR
  10. PIMOZIDE. [Suspect]
     Active Substance: PIMOZIDE
     Indication: DYSKINESIA
  11. PIMOZIDE. [Suspect]
     Active Substance: PIMOZIDE
     Indication: ABNORMAL BEHAVIOUR
     Route: 065

REACTIONS (1)
  - Drug ineffective [Unknown]
